FAERS Safety Report 9633500 (Version 5)
Quarter: 2014Q2

REPORT INFORMATION
  Report Type: Spontaneous
  Country: GB (occurrence: GB)
  Receive Date: 20131021
  Receipt Date: 20140610
  Transmission Date: 20141212
  Serious: Yes (Hospitalization, Other)
  Sender: FDA-Public Use
  Company Number: PHFR2013GB005839

PATIENT
  Age: 36 Year
  Sex: Female

DRUGS (24)
  1. TOBI PODHALER [Suspect]
     Indication: PSEUDOMONAS INFECTION
     Dosage: UNK
  2. TOBI PODHALER [Suspect]
     Indication: CYSTIC FIBROSIS
     Dosage: UNK
  3. TOBI PODHALER [Suspect]
     Dosage: 112 MG, UNK
     Dates: start: 20130801
  4. TOBI PODHALER [Suspect]
     Dosage: UNK
     Dates: end: 20131024
  5. CREON [Concomitant]
     Dosage: UNK 25000, 6 TO 8 PER MAIN MEAL
  6. CALCIUM [Concomitant]
     Dosage: 1 MG, UNK
  7. URSODEOXYCHOLIC ACID [Concomitant]
     Dosage: 250 MG, UNK
     Route: 062
  8. CHOLECALCIFEROL [Concomitant]
     Dosage: UNK UG, UNK
  9. MAGNESIUM GLYCEROPHOSPHATE [Concomitant]
     Dosage: 3 DF, BID
  10. SERETIDE [Concomitant]
     Dosage: 1 DF, BID
  11. VITAMIN E [Concomitant]
     Dosage: 4 DF, 75UE
  12. VITAMIN A + D [Concomitant]
     Dosage: 6 DF, QD AT EVENING
  13. FORCEVAL [Concomitant]
     Dosage: 1 DF, QD
  14. MENADIOL [Concomitant]
     Dosage: 10 MG, UNK
  15. LACTULOSE [Concomitant]
     Dosage: UNK UKN, PRN
  16. FLUIMUCIL [Concomitant]
     Dosage: 2 DF, BID
  17. AZITHROMYCIN [Concomitant]
     Dosage: 500 MG, UNK
  18. CITALOPRAM [Concomitant]
     Dosage: 300 MG, QD
  19. SLOW SODIUM [Concomitant]
     Dosage: 3 DF, UNK
     Route: 062
  20. MOVICOL [Concomitant]
     Dosage: 2 DF, QD
  21. LANSOPRAZOLE [Concomitant]
     Dosage: 15 MG, DAILY
  22. DORNASE [Concomitant]
     Dosage: 2.5 MG, DAILY
  23. ZOPICLONE [Concomitant]
     Dosage: 3.7 MG, DAILY
  24. ALENDRONIC ACID [Concomitant]
     Dosage: 70 MG, ONCE AWEEK

REACTIONS (12)
  - Asthma [Recovered/Resolved]
  - Respiratory disorder [Recovered/Resolved]
  - Wheezing [Recovered/Resolved]
  - Pulmonary function test decreased [Recovered/Resolved]
  - Dyspnoea [Recovered/Resolved]
  - Cough [Recovered/Resolved]
  - Infection [Recovered/Resolved]
  - Malaise [Recovered/Resolved]
  - Chest discomfort [Recovered/Resolved]
  - Bronchospasm [Recovered/Resolved]
  - Cystic fibrosis [Recovered/Resolved]
  - Condition aggravated [Recovered/Resolved]
